FAERS Safety Report 6158629-9 (Version None)
Quarter: 2009Q2

REPORT INFORMATION
  Report Type: 
  Country: None (occurrence: None)
  Receive Date: 20090415
  Receipt Date: 20090402
  Transmission Date: 20091009
  Serious: Yes (Congenital Anomaly)
  Sender: FDA-Public Use
  Company Number: WAES 0904USA01595

PATIENT
  Sex: Female

DRUGS (1)
  1. CRIXIVAN [Suspect]

REACTIONS (2)
  - MATERNAL DRUGS AFFECTING FOETUS [None]
  - PULMONARY VALVE STENOSIS CONGENITAL [None]
